FAERS Safety Report 11029391 (Version 1)
Quarter: 2015Q2

REPORT INFORMATION
  Report Type: Spontaneous
  Country: US (occurrence: US)
  Receive Date: 20150415
  Receipt Date: 20150415
  Transmission Date: 20150821
  Serious: Yes (Hospitalization, Other)
  Sender: FDA-Public Use
  Company Number: US-DENDREON CORPORATION-2015PROUSA04371

PATIENT
  Age: 66 Year
  Sex: Male
  Weight: 76.5 kg

DRUGS (8)
  1. CITALOPRAM [Concomitant]
     Active Substance: CITALOPRAM HYDROBROMIDE
     Indication: PRODUCT USED FOR UNKNOWN INDICATION
     Dosage: 20 MG, QD
     Route: 048
     Dates: start: 20130604
  2. CANAGLIFLOZIN [Concomitant]
     Active Substance: CANAGLIFLOZIN
     Indication: PRODUCT USED FOR UNKNOWN INDICATION
     Dosage: 1000 MG, BID
     Route: 048
     Dates: start: 20141230
  3. ENZALUTAMIDE [Concomitant]
     Active Substance: ENZALUTAMIDE
     Indication: PRODUCT USED FOR UNKNOWN INDICATION
     Dosage: 40 MG, QD
     Route: 048
     Dates: start: 20150302
  4. DEXTROAMPHETAMINE [Concomitant]
     Active Substance: DEXTROAMPHETAMINE
     Indication: PRODUCT USED FOR UNKNOWN INDICATION
     Dosage: 15 MG, QD (MORNING)
     Route: 048
     Dates: start: 20130604
  5. PROVENGE [Suspect]
     Active Substance: SIPULEUCEL-T
     Indication: PROSTATE CANCER METASTATIC
     Dosage: 250 ML, SINGLE
     Route: 042
     Dates: start: 20150223, end: 20150223
  6. LISINOPRIL. [Concomitant]
     Active Substance: LISINOPRIL
     Indication: PRODUCT USED FOR UNKNOWN INDICATION
     Dosage: 10 MG, QD
     Route: 048
     Dates: start: 20130604
  7. PROVENGE [Suspect]
     Active Substance: SIPULEUCEL-T
     Dosage: 250 ML, SINGLE
     Route: 042
     Dates: start: 20150309, end: 20150309
  8. XGEVA [Concomitant]
     Active Substance: DENOSUMAB
     Indication: PRODUCT USED FOR UNKNOWN INDICATION
     Dosage: 120 MG, SINGLE
     Route: 058

REACTIONS (16)
  - Diverticulitis [Recovered/Resolved]
  - Dehydration [Recovering/Resolving]
  - Pyrexia [Unknown]
  - Haematocrit decreased [Unknown]
  - Bronchitis [Recovering/Resolving]
  - Weight decreased [Unknown]
  - Chills [Unknown]
  - Red blood cell count decreased [Unknown]
  - Vomiting [Unknown]
  - Influenza like illness [Unknown]
  - Hypophagia [Recovering/Resolving]
  - Nausea [Unknown]
  - Dysuria [Unknown]
  - Asthenia [Unknown]
  - Haemoglobin decreased [Unknown]
  - Hyperkalaemia [Unknown]

NARRATIVE: CASE EVENT DATE: 201503
